FAERS Safety Report 24561513 (Version 1)
Quarter: 2024Q4

REPORT INFORMATION
  Report Type: Spontaneous
  Country: US (occurrence: None)
  Receive Date: 20241029
  Receipt Date: 20241029
  Transmission Date: 20250115
  Serious: Yes (Death)
  Sender: Public
  Company Number: None

PATIENT
  Sex: Male

DRUGS (3)
  1. KETAMINE [Suspect]
     Active Substance: KETAMINE
     Indication: Depression
  2. KETAMINE [Suspect]
     Active Substance: KETAMINE
     Indication: Anxiety
  3. FENTANYL [Suspect]
     Active Substance: FENTANYL

REACTIONS (2)
  - Drug dependence [None]
  - Overdose [None]
